FAERS Safety Report 5302496-X (Version None)
Quarter: 2007Q2

REPORT INFORMATION
  Report Type: 
  Country: None (occurrence: None)
  Receive Date: 20070419
  Receipt Date: 20070410
  Transmission Date: 20071010
  Serious: Yes (Death, Hospitalization, Other)
  Sender: FDA-Public Use
  Company Number: US-ELI_LILLY_AND_COMPANY-US200704002549

PATIENT
  Sex: Female

DRUGS (2)
  1. HUMULIN N [Suspect]
     Indication: DIABETES MELLITUS
  2. HUMULIN R [Suspect]
     Indication: DIABETES MELLITUS
     Dates: start: 20060101

REACTIONS (10)
  - BLOOD POTASSIUM INCREASED [None]
  - COLD SWEAT [None]
  - COMA [None]
  - DIALYSIS DEVICE INSERTION [None]
  - HEART RATE IRREGULAR [None]
  - INFECTION [None]
  - MUSCULOSKELETAL STIFFNESS [None]
  - MYOCARDIAL INFARCTION [None]
  - PERIPHERAL COLDNESS [None]
  - TREMOR [None]
